FAERS Safety Report 14175785 (Version 1)
Quarter: 2017Q4

REPORT INFORMATION
  Report Type: Spontaneous
  Country: US (occurrence: IT)
  Receive Date: 20171109
  Receipt Date: 20171109
  Transmission Date: 20180321
  Serious: Yes (Death)
  Sender: FDA-Public Use
  Company Number: US-PFIZER INC-K200800145

PATIENT
  Age: 65 Year
  Sex: Male

DRUGS (10)
  1. EPIPEN JR [Suspect]
     Active Substance: EPINEPHRINE
     Indication: OROPHARYNGEAL PAIN
  2. BENTELAN [Suspect]
     Active Substance: BETAMETHASONE SODIUM PHOSPHATE
     Indication: HYPERSENSITIVITY
  3. BENTELAN [Suspect]
     Active Substance: BETAMETHASONE SODIUM PHOSPHATE
     Indication: THROAT IRRITATION
     Dosage: UNK
     Dates: start: 20080123, end: 20080123
  4. BENTELAN [Suspect]
     Active Substance: BETAMETHASONE SODIUM PHOSPHATE
     Indication: ANAPHYLACTIC SHOCK
  5. TRIMETON [Suspect]
     Active Substance: CHLORPHENIRAMINE MALEATE
     Indication: THROAT IRRITATION
     Dosage: UNK
     Dates: start: 20080123, end: 20080123
  6. TRIMETON [Suspect]
     Active Substance: CHLORPHENIRAMINE MALEATE
     Indication: ANAPHYLACTIC SHOCK
  7. TRIMETON [Suspect]
     Active Substance: CHLORPHENIRAMINE MALEATE
     Indication: HYPERSENSITIVITY
  8. EPIPEN JR [Suspect]
     Active Substance: EPINEPHRINE
     Indication: ANAPHYLACTIC REACTION
     Dosage: 165 UG, SINGLE
     Route: 030
     Dates: start: 20080123, end: 20080123
  9. EPIPEN JR [Suspect]
     Active Substance: EPINEPHRINE
     Indication: ANAPHYLACTIC SHOCK
  10. EPIPEN JR [Suspect]
     Active Substance: EPINEPHRINE
     Indication: HYPERSENSITIVITY

REACTIONS (2)
  - Underdose [Fatal]
  - Drug ineffective [Fatal]

NARRATIVE: CASE EVENT DATE: 20080123
